FAERS Safety Report 24595211 (Version 3)
Quarter: 2024Q4

REPORT INFORMATION
  Report Type: Report from Study
  Country: ES (occurrence: ES)
  Receive Date: 20241108
  Receipt Date: 20241213
  Transmission Date: 20250114
  Serious: Yes (Other)
  Sender: ABBVIE
  Company Number: ES-ABBVIE-5989698

PATIENT
  Age: 71 Year
  Sex: Male

DRUGS (3)
  1. CARBIDOPA\LEVODOPA [Suspect]
     Active Substance: CARBIDOPA\LEVODOPA
     Indication: Parkinson^s disease
     Dosage: 240 MG/ML + 12 MG/ML SOLUTION FOR INFUSION, DOSE ADJUSTED
     Route: 058
     Dates: start: 2024, end: 2024
  2. CARBIDOPA\LEVODOPA [Suspect]
     Active Substance: CARBIDOPA\LEVODOPA
     Dosage: 240 MG/ML + 12 MG/ML SOLUTION FOR INFUSION, LAST ADMIN DATE: 2024
     Route: 058
     Dates: start: 20240904
  3. CARBIDOPA\LEVODOPA [Suspect]
     Active Substance: CARBIDOPA\LEVODOPA
     Dosage: 240 MG/ML + 12 MG/ML SOLUTION FOR INFUSION, DOSE ADJUSTMENT
     Route: 058
     Dates: start: 20241106

REACTIONS (7)
  - Urinary tract infection [Recovering/Resolving]
  - Fall [Unknown]
  - Agitation [Recovering/Resolving]
  - Unevaluable event [Not Recovered/Not Resolved]
  - Head injury [Not Recovered/Not Resolved]
  - Gait inability [Not Recovered/Not Resolved]
  - Therapeutic product effect incomplete [Unknown]

NARRATIVE: CASE EVENT DATE: 20240101
